FAERS Safety Report 10182999 (Version 1)
Quarter: 2014Q2

REPORT INFORMATION
  Report Type: Spontaneous
  Country: US (occurrence: US)
  Receive Date: 20140520
  Receipt Date: 20140520
  Transmission Date: 20141212
  Serious: No
  Sender: FDA-Public Use
  Company Number: US-PFIZER INC-2014136267

PATIENT
  Age: 27 Year
  Sex: Male
  Weight: 68.03 kg

DRUGS (1)
  1. ADVIL [Suspect]
     Indication: SWELLING FACE
     Dosage: 600 MG, ONCE
     Dates: start: 20140514, end: 20140514

REACTIONS (2)
  - Off label use [Unknown]
  - Urticaria [Unknown]
